APPROVED DRUG PRODUCT: BUMETANIDE
Active Ingredient: BUMETANIDE
Strength: 2MG
Dosage Form/Route: TABLET;ORAL
Application: A219291 | Product #003 | TE Code: AB
Applicant: MANKIND PHARMA LTD
Approved: Apr 3, 2025 | RLD: No | RS: No | Type: RX